FAERS Safety Report 8168472-7 (Version None)
Quarter: 2012Q1

REPORT INFORMATION
  Report Type: 
  Country: None (occurrence: None)
  Receive Date: 20120227
  Receipt Date: 20120221
  Transmission Date: 20120608
  Serious: Yes (Other)
  Sender: FDA-Public Use
  Company Number: US-AMGEN-USASP2011010695

PATIENT
  Age: 71 Year
  Sex: Female
  Weight: 80.272 kg

DRUGS (34)
  1. BENGAY [Concomitant]
     Dosage: UNK
     Route: 061
  2. FLUOXETINE HYDROCHLORIDE [Concomitant]
     Dosage: 10 MG, UNK
     Route: 048
     Dates: start: 20110926
  3. TOPIRAMATE [Concomitant]
     Dosage: 100 MG, QHS
     Route: 048
     Dates: start: 20110926
  4. MAGNESIUM HYDROXIDE TAB [Concomitant]
     Indication: DYSPEPSIA
     Dosage: 30 ML, PRN
     Route: 048
  5. DOCUSATE SODIUM [Concomitant]
     Dosage: 200 MG, QHS
     Route: 048
  6. ACETAMINOPHEN AND HYDROCODONE BITARTRATE [Concomitant]
     Dosage: UNK UNK, QWK
     Route: 048
     Dates: start: 20110926
  7. VITAMIN D [Concomitant]
     Dosage: 50000 IU, QWK
     Route: 048
     Dates: start: 20110926
  8. CALCIUM [Concomitant]
     Dosage: 667 MG, UNK
     Dates: start: 20110926
  9. RENVELA [Concomitant]
     Dosage: 800 MG, TID
     Route: 048
     Dates: start: 20110926
  10. METOPROLOL TARTRATE [Concomitant]
     Dosage: 25 MG, BID
     Dates: start: 20110926
  11. ASPIRIN [Concomitant]
     Dosage: 81 MG, UNK
     Route: 048
     Dates: start: 20110926
  12. FERROUS SULFATE TAB [Concomitant]
     Dosage: 325 MG, UNK
     Route: 048
     Dates: start: 20110101
  13. SPIRIVA [Concomitant]
     Dosage: 18 MUG, QD
     Route: 055
     Dates: start: 20110926
  14. SIMVASTATIN [Concomitant]
     Dosage: 40 MG, QD
     Route: 048
     Dates: start: 20110926
  15. OXYBUTYNIN [Concomitant]
     Dosage: 10 MG, UNK
     Route: 048
     Dates: start: 20110926
  16. VENTOLIN HFA [Concomitant]
     Dosage: 2 UNK, QID
     Route: 048
  17. PHENAZOPYRIDINE HCL TAB [Concomitant]
     Dosage: 200 MG, UNK
     Dates: start: 20110926
  18. HUMALOG [Concomitant]
     Indication: DIABETES MELLITUS
     Dosage: 6 UNIT, QD
     Route: 058
     Dates: start: 20110926
  19. HUMILIN R [Concomitant]
     Indication: DIABETES MELLITUS
     Dosage: UNK, PRN
  20. BISACODYL [Concomitant]
     Dosage: 10 MG, QOD
     Route: 050
  21. GLUCAGEN [Concomitant]
     Dosage: 1 MG, PRN
     Route: 058
  22. NEPHRO-VITE RX [Concomitant]
     Dosage: 1 UNK, QD
     Route: 048
  23. HUMALOG [Concomitant]
     Dosage: 12 UNIT, QD
     Route: 058
  24. GENTAMICIN [Concomitant]
  25. GUIATUSS [Concomitant]
     Dosage: 100 MG, UNK
     Route: 048
  26. PLAVIX [Concomitant]
     Dosage: 75 MG, UNK
     Route: 048
     Dates: start: 20110926
  27. LANTUS [Concomitant]
     Dosage: 40 UNIT, QHS
     Route: 058
     Dates: start: 20110926
  28. GUAIFENESIN [Concomitant]
     Indication: COUGH
     Dosage: 200 MG, PRN
  29. ACETAMINOPHEN [Concomitant]
     Indication: PAIN
     Dosage: 325 MG, PRN
     Route: 048
     Dates: start: 20110926
  30. MI-ACID DOUBLE STRENGTH [Concomitant]
     Dosage: UNK
     Route: 048
  31. AMITRIPTYLINE HCL [Concomitant]
     Dosage: 50 MG, UNK
     Route: 048
     Dates: start: 20110926
  32. TUMS EX [Concomitant]
     Dosage: 500 MG, TID
     Route: 048
     Dates: start: 20110926
  33. PROLIA [Suspect]
     Indication: OSTEOPOROSIS POSTMENOPAUSAL
     Dosage: 60 MG, ONE TIME DOSE
     Route: 058
     Dates: start: 20110204, end: 20110204
  34. PANTOPRAZOLE SODIUM [Concomitant]
     Dosage: 40 MG, UNK
     Route: 048
     Dates: start: 20110926

REACTIONS (3)
  - MUSCLE SPASMS [None]
  - TETANY [None]
  - HYPOCALCAEMIA [None]
